FAERS Safety Report 23176497 (Version 1)
Quarter: 2023Q4

REPORT INFORMATION
  Report Type: Spontaneous
  Country: US (occurrence: None)
  Receive Date: 20231110
  Receipt Date: 20231110
  Transmission Date: 20240109
  Serious: Yes (Other)
  Sender: FDA-Public Use
  Company Number: None

PATIENT
  Age: 9 Year
  Sex: Male
  Weight: 42.75 kg

DRUGS (1)
  1. MONTELUKAST [Suspect]
     Active Substance: MONTELUKAST SODIUM
     Indication: Asthma
     Dates: start: 20231026

REACTIONS (7)
  - Insomnia [None]
  - Adverse drug reaction [None]
  - Anxiety [None]
  - Tic [None]
  - Aggression [None]
  - Hostility [None]
  - Negative thoughts [None]

NARRATIVE: CASE EVENT DATE: 20231026
